FAERS Safety Report 5939880-7 (Version None)
Quarter: 2008Q4

REPORT INFORMATION
  Report Type: 
  Country: None (occurrence: None)
  Receive Date: 20081104
  Receipt Date: 20081029
  Transmission Date: 20090506
  Serious: Yes (Other)
  Sender: FDA-Public Use
  Company Number: US-BRISTOL-MYERS SQUIBB COMPANY-14388060

PATIENT
  Age: 28 Year
  Sex: Female

DRUGS (13)
  1. WARFARIN SODIUM [Suspect]
     Dates: start: 20070101
  2. HEPARIN SODIUM [Suspect]
     Indication: COAGULOPATHY
     Dosage: MAY07-OCT07;OCT07-JAN08;1 DOSAGE FORM=VARIED 5000 U UP TO 10000U TID U
     Dates: start: 20070501, end: 20080101
  3. LOVENOX [Suspect]
     Dosage: JAN07-MAY07;RESTARTED IN OCT07.
     Dates: start: 20071001
  4. LOPRESSOR [Concomitant]
  5. ACETAMINOPHEN [Concomitant]
  6. VICODIN [Concomitant]
  7. PERCOCET [Concomitant]
  8. VITAMIN D [Concomitant]
  9. ASCORBIC ACID [Concomitant]
  10. POTASSIUM CHLORIDE [Concomitant]
  11. PREDNISONE TAB [Concomitant]
  12. LABETALOL HCL [Concomitant]
  13. PROMETHAZINE [Concomitant]

REACTIONS (11)
  - ABDOMINAL PAIN [None]
  - ALOPECIA [None]
  - BUTTERFLY RASH [None]
  - CHEST PAIN [None]
  - DEHYDRATION [None]
  - HYPOKALAEMIA [None]
  - HYPOTENSION [None]
  - INFLUENZA LIKE ILLNESS [None]
  - PERICARDITIS [None]
  - PYREXIA [None]
  - STOMATITIS [None]
